FAERS Safety Report 24679444 (Version 2)
Quarter: 2024Q4

REPORT INFORMATION
  Report Type: Report from Study
  Country: GB (occurrence: GB)
  Receive Date: 20241129
  Receipt Date: 20241230
  Transmission Date: 20250115
  Serious: Yes (Hospitalization)
  Sender: TAKEDA
  Company Number: GB-TAKEDA-2024TUS027641

PATIENT
  Age: 87 Year
  Sex: Female

DRUGS (2)
  1. VEDOLIZUMAB [Suspect]
     Active Substance: VEDOLIZUMAB
     Indication: Crohn^s disease
     Dosage: 108 MILLIGRAM, Q2WEEKS
  2. VEDOLIZUMAB [Suspect]
     Active Substance: VEDOLIZUMAB

REACTIONS (8)
  - Abdominal pain upper [Not Recovered/Not Resolved]
  - Melanocytic naevus [Unknown]
  - Latent tuberculosis [Unknown]
  - Injection site extravasation [Unknown]
  - Incorrect dose administered [Unknown]
  - Wrong technique in product usage process [Unknown]
  - Inappropriate schedule of product administration [Recovered/Resolved]
  - Varicose vein [Unknown]

NARRATIVE: CASE EVENT DATE: 20241106
